FAERS Safety Report 25908864 (Version 1)
Quarter: 2025Q4

REPORT INFORMATION
  Report Type: Report from Study
  Country: EU (occurrence: EU)
  Receive Date: 20251011
  Receipt Date: 20251011
  Transmission Date: 20260119
  Serious: Yes (Other)
  Sender: ABBVIE
  Company Number: EU-ABBVIE-6478178

PATIENT
  Age: 80 Year
  Sex: Male

DRUGS (2)
  1. FOSCARBIDOPA\FOSLEVODOPA [Suspect]
     Active Substance: FOSCARBIDOPA\FOSLEVODOPA
     Indication: Parkinson^s disease
     Dosage: DOSE: SD: 0.6 ML, CR: 0.17 SAMPLE ML/H, CRH: 0.19 ML/H, CRN: 0.15 ML/H, ED: 0.3 ML ?LAST ADMIN DA...
     Route: 058
     Dates: start: 20250923
  2. FOSCARBIDOPA\FOSLEVODOPA [Suspect]
     Active Substance: FOSCARBIDOPA\FOSLEVODOPA
     Dosage: DOSE: SD: 0.6 ML, CR: 0.18 ML/H, CRH: 0.20 ML/H, CRN: 0.16 ML/H, ED: 0.1 ?START DATE: SEP 2025
     Route: 058

REACTIONS (2)
  - Hypertensive crisis [Unknown]
  - On and off phenomenon [Unknown]

NARRATIVE: CASE EVENT DATE: 20250901
